FAERS Safety Report 23049891 (Version 1)
Quarter: 2023Q4

REPORT INFORMATION
  Report Type: Spontaneous
  Country: FR (occurrence: FR)
  Receive Date: 20231010
  Receipt Date: 20231010
  Transmission Date: 20240109
  Serious: Yes (Other)
  Sender: FDA-Public Use
  Company Number: None

PATIENT
  Sex: Male

DRUGS (1)
  1. HUMAN IMMUNOGLOBULIN G [Suspect]
     Active Substance: HUMAN IMMUNOGLOBULIN G
     Indication: Multifocal motor neuropathy
     Dosage: 75 GRAM PER DAY FOR 2 DAYS, EVERY 5 WEEKS
     Route: 042

REACTIONS (3)
  - Therapeutic response shortened [Unknown]
  - Product use complaint [Unknown]
  - No adverse event [Unknown]
